FAERS Safety Report 17472676 (Version 1)
Quarter: 2020Q1

REPORT INFORMATION
  Report Type: Spontaneous
  Country: US (occurrence: US)
  Receive Date: 20200218
  Receipt Date: 20200218
  Transmission Date: 20200409
  Serious: Yes (Hospitalization)
  Sender: FDA-Public Use
  Company Number: None

PATIENT
  Age: 65 Year
  Sex: Female

DRUGS (4)
  1. MELOXICAM. [Concomitant]
     Active Substance: MELOXICAM
  2. VIOS [Concomitant]
  3. HUMIRA [Suspect]
     Active Substance: ADALIMUMAB
     Indication: RHEUMATOID ARTHRITIS
     Dosage: ?          OTHER FREQUENCY:EVERY2WEEKS;?
     Route: 058
     Dates: start: 201911
  4. LYRICA [Concomitant]
     Active Substance: PREGABALIN

REACTIONS (4)
  - Bronchitis [None]
  - Dyspnoea [None]
  - Chronic obstructive pulmonary disease [None]
  - Fall [None]

NARRATIVE: CASE EVENT DATE: 20191226
